FAERS Safety Report 8517922-2 (Version None)
Quarter: 2012Q3

REPORT INFORMATION
  Report Type: 
  Country: None (occurrence: None)
  Receive Date: 20120718
  Receipt Date: 20110719
  Transmission Date: 20120928
  Serious: No
  Sender: FDA-Public Use
  Company Number: US-BRISTOL-MYERS SQUIBB COMPANY-15911050

PATIENT
  Age: 66 Year
  Sex: Female

DRUGS (4)
  1. WARFARIN SODIUM [Suspect]
     Indication: THROMBOSIS
     Dosage: FIVE DAYS 7.5MG AND TWO DAYS 5MG.
  2. TYLENOL [Concomitant]
  3. COMBIVENT [Concomitant]
  4. LISINOPRIL [Concomitant]

REACTIONS (1)
  - INSOMNIA [None]
